FAERS Safety Report 9540492 (Version 5)
Quarter: 2014Q1

REPORT INFORMATION
  Report Type: Report from Study
  Country: FR (occurrence: FR)
  Receive Date: 20130920
  Receipt Date: 20140219
  Transmission Date: 20141002
  Serious: Yes (Hospitalization)
  Sender: FDA-Public Use
  Company Number: FR-ROCHE-1275508

PATIENT
  Age: 67 Year
  Sex: Female
  Weight: 55 kg

DRUGS (6)
  1. VEMURAFENIB [Suspect]
     Indication: MALIGNANT MELANOMA
     Dosage: LAST DOSE 10/SEP/2013, DRUG INTERRUPTED
     Route: 048
     Dates: start: 20130826, end: 20130910
  2. VEMURAFENIB [Suspect]
     Route: 048
     Dates: start: 20130917
  3. PARACETAMOL [Concomitant]
     Indication: PYREXIA
     Route: 048
     Dates: start: 20130909
  4. BETAMETHASONE [Concomitant]
     Indication: RASH
     Route: 061
     Dates: start: 20130902
  5. PLACEBO [Suspect]
     Indication: PRODUCT USED FOR UNKNOWN INDICATION
     Route: 048
     Dates: start: 20130826, end: 20130910
  6. PLACEBO [Suspect]
     Route: 048
     Dates: start: 20130917

REACTIONS (1)
  - Dermatitis exfoliative [Recovered/Resolved]
